FAERS Safety Report 9531301 (Version 3)
Quarter: 2013Q3

REPORT INFORMATION
  Report Type: Report from Study
  Country: US (occurrence: US)
  Receive Date: 20130918
  Receipt Date: 20130930
  Transmission Date: 20140515
  Serious: Yes (Hospitalization)
  Sender: FDA-Public Use
  Company Number: US-ASTRAZENECA-2013SE68263

PATIENT
  Age: 28045 Day
  Sex: Female

DRUGS (7)
  1. AZD6140 [Suspect]
     Indication: CORONARY ARTERY DISEASE
     Route: 048
     Dates: start: 20110509, end: 20130827
  2. LISINOPRIL [Concomitant]
     Indication: HYPERTENSION
     Route: 048
  3. CO-Q10 [Concomitant]
     Indication: FATIGUE
     Route: 048
     Dates: start: 20110905
  4. FUROSEMIDE [Concomitant]
     Indication: CARDIAC FAILURE CONGESTIVE
     Route: 048
  5. VITAMIN C [Concomitant]
     Indication: IMMUNE SYSTEM DISORDER
     Route: 048
  6. FISH OIL [Concomitant]
     Indication: HYPERCHOLESTEROLAEMIA
     Route: 048
  7. ASA [Concomitant]
     Route: 048

REACTIONS (2)
  - Gastric ulcer haemorrhage [Recovered/Resolved]
  - Iron deficiency anaemia [Recovered/Resolved]
